FAERS Safety Report 7603154-9 (Version None)
Quarter: 2011Q3

REPORT INFORMATION
  Report Type: 
  Country: None (occurrence: None)
  Receive Date: 20110711
  Receipt Date: 20110711
  Transmission Date: 20111222
  Serious: Yes (Hospitalization)
  Sender: FDA-Public Use
  Company Number: None

PATIENT
  Age: 51 Year
  Sex: Female
  Weight: 79.4702 kg

DRUGS (1)
  1. TYSABRI [Suspect]
     Indication: MULTIPLE SCLEROSIS
     Dosage: 300MG Q26DAYS IV
     Route: 042
     Dates: start: 20100401, end: 20101201

REACTIONS (2)
  - OEDEMA PERIPHERAL [None]
  - MUSCULOSKELETAL DISORDER [None]
